FAERS Safety Report 26087668 (Version 1)
Quarter: 2025Q4

REPORT INFORMATION
  Report Type: Spontaneous
  Country: JP (occurrence: JP)
  Receive Date: 20251125
  Receipt Date: 20251125
  Transmission Date: 20260118
  Serious: Yes (Other)
  Sender: ELI LILLY AND COMPANY
  Company Number: JP-ELI_LILLY_AND_COMPANY-JP202502020159

PATIENT
  Age: 17 Year
  Sex: Male

DRUGS (2)
  1. GEMCITABINE HYDROCHLORIDE [Suspect]
     Active Substance: GEMCITABINE HYDROCHLORIDE
     Indication: Nasopharyngeal cancer recurrent
     Route: 041
  2. OXALIPLATIN [Suspect]
     Active Substance: OXALIPLATIN
     Indication: Nasopharyngeal cancer recurrent
     Route: 065

REACTIONS (3)
  - Thrombotic microangiopathy [Recovered/Resolved]
  - Interstitial lung disease [Unknown]
  - Off label use [Unknown]
